FAERS Safety Report 5552443-0 (Version None)
Quarter: 2007Q4

REPORT INFORMATION
  Report Type: 
  Country: None (occurrence: None)
  Receive Date: 20071205
  Receipt Date: 20071129
  Transmission Date: 20080405
  Serious: Yes (Other)
  Sender: FDA-Public Use
  Company Number: CHPA2007US12965

PATIENT
  Sex: Female

DRUGS (1)
  1. EXCEDRIN (MIGRAINE) [Suspect]
     Dosage: 10 DF, ONCE/SINGLE,ORAL
     Route: 048
     Dates: start: 20071129, end: 20071129

REACTIONS (2)
  - NO ADVERSE DRUG REACTION [None]
  - OVERDOSE [None]
